FAERS Safety Report 8603303-X (Version None)
Quarter: 2012Q3

REPORT INFORMATION
  Report Type: 
  Country: None (occurrence: None)
  Receive Date: 20120817
  Receipt Date: 20120815
  Transmission Date: 20120928
  Serious: Yes (Death)
  Sender: FDA-Public Use
  Company Number: PHHO2012US011939

PATIENT
  Sex: Female
  Weight: 101.4 kg

DRUGS (5)
  1. TRAMADOL HCL [Concomitant]
     Indication: OSTEOARTHRITIS
     Dosage: 50 MG QD, PRN PAIN
     Dates: start: 20100101
  2. GABAPENTIN [Concomitant]
     Indication: OSTEOARTHRITIS
     Dosage: 600 MG, QD
     Route: 048
     Dates: start: 19990901
  3. GILENYA [Suspect]
     Indication: RELAPSING-REMITTING MULTIPLE SCLEROSIS
     Dosage: 0.5 MG, QD
     Route: 048
     Dates: start: 20110614, end: 20111201
  4. GABAPENTIN [Concomitant]
     Dosage: 1200 MG, QD
     Route: 048
  5. GABAPENTIN [Concomitant]
     Dosage: 5000 MG, UNK

REACTIONS (1)
  - DEATH [None]
